FAERS Safety Report 4822043-6 (Version None)
Quarter: 2005Q4

REPORT INFORMATION
  Report Type: 
  Country: None (occurrence: None)
  Receive Date: 20051103
  Receipt Date: 20051024
  Transmission Date: 20060501
  Serious: Yes (Other)
  Sender: FDA-Public Use
  Company Number: 200514271BCC

PATIENT
  Age: 70 Year
  Sex: Male
  Weight: 74.8435 kg

DRUGS (14)
  1. ORIGINAL ALKA-SELTZER [Suspect]
     Indication: DYSPEPSIA
     Dosage: 650 MG, ORAL
     Route: 048
  2. COREG [Concomitant]
  3. NORVASC [Concomitant]
  4. PRAVACHOL [Concomitant]
  5. IMDUR [Concomitant]
  6. IRON [Concomitant]
  7. OMEPRAZOLE [Concomitant]
  8. RENAGEL [Concomitant]
  9. HYTRIN [Concomitant]
  10. COLCHICINE [Concomitant]
  11. ALLOPURINOL [Concomitant]
  12. NITROBID / BRA/ [Concomitant]
  13. ASPIRIN,  GENERIC [Concomitant]
  14. AMBIEN [Concomitant]

REACTIONS (1)
  - BLOOD PHOSPHORUS INCREASED [None]
